FAERS Safety Report 16684711 (Version 1)
Quarter: 2019Q3

REPORT INFORMATION
  Report Type: Report from Study
  Country: US (occurrence: US)
  Receive Date: 20190808
  Receipt Date: 20190808
  Transmission Date: 20191004
  Serious: Yes (Other)
  Sender: FDA-Public Use
  Company Number: US-MALLINCKRODT-T201805467

PATIENT
  Age: 58 Year
  Sex: Female

DRUGS (6)
  1. REPOSITORY CORTICOTROPIN INJECTION [Suspect]
     Active Substance: CORTICOTROPIN
     Indication: NEUROTROPHIC KERATOPATHY
     Dosage: 80 UNITS/1 ML, 2 TIMES PER WEEK
     Route: 058
     Dates: start: 20190121, end: 2019
  2. REPOSITORY CORTICOTROPIN INJECTION [Suspect]
     Active Substance: CORTICOTROPIN
     Dosage: 80 UNITS/1 ML, 2 TIMES PER WEEK (TUESDAY AND THURSDAY)
     Route: 058
     Dates: start: 2019, end: 2019
  3. REPOSITORY CORTICOTROPIN INJECTION [Suspect]
     Active Substance: CORTICOTROPIN
     Indication: DRY EYE
     Dosage: 80 UNITS/1 ML, 2 TIMES PER WEEK TUESDAY AND THURSDAY
     Route: 058
     Dates: start: 20181126, end: 20181213
  4. REPOSITORY CORTICOTROPIN INJECTION [Suspect]
     Active Substance: CORTICOTROPIN
     Indication: UVEITIS
     Dosage: 80 UNITS, TWICE A WEEK (14/15, NOV/2018; UNSPECIFIED DATE)
     Route: 058
     Dates: start: 201811
  5. METHOTREXATE. [Suspect]
     Active Substance: METHOTREXATE
     Indication: ANKYLOSING SPONDYLITIS
     Dosage: 9 MG, UNK
     Route: 065
  6. METHOTREXATE. [Suspect]
     Active Substance: METHOTREXATE
     Indication: RHEUMATOID ARTHRITIS

REACTIONS (38)
  - Rotator cuff syndrome [Unknown]
  - Irritability [Recovering/Resolving]
  - Thyroid disorder [Unknown]
  - Pallor [Not Recovered/Not Resolved]
  - Visual acuity reduced [Not Recovered/Not Resolved]
  - Lacrimation increased [Not Recovered/Not Resolved]
  - Retching [Unknown]
  - Injection site bruising [Not Recovered/Not Resolved]
  - Insomnia [Unknown]
  - Swelling face [Unknown]
  - White blood cell count decreased [Unknown]
  - Malaise [Unknown]
  - Exostosis [Unknown]
  - Influenza [Unknown]
  - Therapy cessation [Unknown]
  - Product dose omission [Unknown]
  - Pertussis [Not Recovered/Not Resolved]
  - Weight fluctuation [Not Recovered/Not Resolved]
  - Fatigue [Not Recovered/Not Resolved]
  - Blood triglycerides increased [Unknown]
  - Injection site vesicles [Unknown]
  - Carcinoid tumour pulmonary [Recovering/Resolving]
  - Immune system disorder [Unknown]
  - Nausea [Not Recovered/Not Resolved]
  - Cardiac murmur [Unknown]
  - Tremor [Not Recovered/Not Resolved]
  - Dysphonia [Unknown]
  - Decreased appetite [Not Recovered/Not Resolved]
  - Hypersensitivity [Not Recovered/Not Resolved]
  - Post-traumatic stress disorder [Unknown]
  - Thyroidectomy [Unknown]
  - Macrocytosis [Unknown]
  - Liver disorder [Unknown]
  - Radiotherapy to thyroid [Unknown]
  - Alopecia [Not Recovered/Not Resolved]
  - Splenomegaly [Unknown]
  - Injection site pain [Not Recovered/Not Resolved]
  - Rash [Not Recovered/Not Resolved]

NARRATIVE: CASE EVENT DATE: 2018
